FAERS Safety Report 5713323-0 (Version None)
Quarter: 2008Q2

REPORT INFORMATION
  Report Type: 
  Country: None (occurrence: None)
  Receive Date: 20080422
  Receipt Date: 20080410
  Transmission Date: 20081010
  Serious: Yes (Other)
  Sender: FDA-Public Use
  Company Number: US-PFIZER INC-2008014219

PATIENT
  Sex: Female
  Weight: 88.5 kg

DRUGS (11)
  1. LYRICA [Suspect]
     Indication: FIBROMYALGIA
  2. LYRICA [Interacting]
     Indication: NEURALGIA
  3. KLONOPIN [Interacting]
     Indication: POST-TRAUMATIC STRESS DISORDER
  4. SEROQUEL [Interacting]
     Indication: MOOD SWINGS
  5. REMERON [Interacting]
     Indication: DEPRESSION
  6. CYMBALTA [Interacting]
     Indication: DEPRESSION
  7. AMBIEN [Interacting]
     Indication: INSOMNIA
  8. GLIPIZIDE [Concomitant]
  9. LIPITOR [Concomitant]
  10. DETROL LA [Concomitant]
  11. NEXIUM [Concomitant]

REACTIONS (3)
  - DRUG INEFFECTIVE [None]
  - DRUG INTERACTION [None]
  - HALLUCINATION [None]
